FAERS Safety Report 11157068 (Version 1)
Quarter: 2015Q2

REPORT INFORMATION
  Report Type: Spontaneous
  Country: PL (occurrence: PL)
  Receive Date: 20150602
  Receipt Date: 20150602
  Transmission Date: 20150821
  Serious: Yes (Other)
  Sender: FDA-Public Use
  Company Number: PL-TEVA-566744ISR

PATIENT
  Age: 75 Year
  Sex: Female

DRUGS (1)
  1. CORTARE [Suspect]
     Active Substance: BECLOMETHASONE DIPROPIONATE
     Route: 055
     Dates: start: 201303, end: 20130722

REACTIONS (2)
  - Weight increased [Unknown]
  - Upper respiratory tract infection [Unknown]
